FAERS Safety Report 12239416 (Version 1)
Quarter: 2016Q2

REPORT INFORMATION
  Report Type: Spontaneous
  Country: US (occurrence: US)
  Receive Date: 20160405
  Receipt Date: 20160405
  Transmission Date: 20160815
  Serious: No
  Sender: FDA-Public Use
  Company Number: US-BAYER-2016-058187

PATIENT
  Sex: Female
  Weight: 63.49 kg

DRUGS (3)
  1. ALEVE [Suspect]
     Active Substance: NAPROXEN SODIUM
     Indication: BACK PAIN
     Dosage: UNK
     Route: 048
     Dates: start: 201603
  2. ALEVE [Suspect]
     Active Substance: NAPROXEN SODIUM
     Indication: BACK PAIN
     Dosage: UNK, BID
     Route: 048
     Dates: start: 20160315, end: 20160322
  3. ALEVE [Suspect]
     Active Substance: NAPROXEN SODIUM
     Indication: BACK PAIN
     Dosage: UNK
     Route: 048
     Dates: start: 201603

REACTIONS (5)
  - Product use issue [None]
  - Throat irritation [None]
  - Wrong technique in product usage process [None]
  - Drug prescribing error [None]
  - Product use issue [None]

NARRATIVE: CASE EVENT DATE: 20160315
